FAERS Safety Report 9554992 (Version 1)
Quarter: 2013Q3

REPORT INFORMATION
  Report Type: Spontaneous
  Country: US (occurrence: None)
  Receive Date: 20130815
  Receipt Date: 20130815
  Transmission Date: 20140515
  Serious: Yes (Other)
  Sender: FDA-Public Use
  Company Number: ADR-2013-00193

PATIENT
  Sex: Male

DRUGS (4)
  1. BACLOFEN [Suspect]
     Indication: PAIN
  2. BUPIVACAINE [Concomitant]
  3. CLONIDINE [Concomitant]
  4. FENTANYL [Concomitant]

REACTIONS (7)
  - Pain [None]
  - Muscle spasms [None]
  - Diarrhoea [None]
  - Drug withdrawal syndrome [None]
  - Influenza like illness [None]
  - Therapeutic response decreased [None]
  - Vomiting [None]
